FAERS Safety Report 5814559-0 (Version None)
Quarter: 2008Q3

REPORT INFORMATION
  Report Type: 
  Country: None (occurrence: None)
  Receive Date: 20080718
  Receipt Date: 20070823
  Transmission Date: 20090109
  Serious: No
  Sender: FDA-Public Use
  Company Number: US-KINGPHARMUSA00001-K200701084

PATIENT

DRUGS (6)
  1. LEVOXYL [Suspect]
     Indication: THYROIDECTOMY
     Dosage: 150 MCG, QD
     Route: 048
     Dates: start: 20070301
  2. DIURETICS [Concomitant]
     Indication: BLOOD PRESSURE
     Dosage: UNK, QD
     Route: 048
  3. POTASSIUM CHLORIDE [Concomitant]
     Indication: BLOOD PRESSURE
     Dosage: UNK, QD
     Route: 048
  4. CALCIUM W/VITAMIN D NOS [Concomitant]
     Indication: PARATHYROID DISORDER
     Dosage: UNK, QD
     Route: 048
  5. VITAMIN TAB [Concomitant]
     Indication: PARATHYROID DISORDER
     Dosage: UNK, QD
     Route: 048
  6. MINERALS NOS [Concomitant]
     Indication: PARATHYROID DISORDER
     Dosage: UNK, QD
     Route: 048

REACTIONS (5)
  - DRUG EFFECT DECREASED [None]
  - DRY EYE [None]
  - MALABSORPTION [None]
  - MUSCLE FATIGUE [None]
  - VISUAL IMPAIRMENT [None]
